FAERS Safety Report 6708586-9 (Version None)
Quarter: 2010Q2

REPORT INFORMATION
  Report Type: 
  Country: None (occurrence: None)
  Receive Date: 20100503
  Receipt Date: 20100422
  Transmission Date: 20101027
  Serious: Yes (Life-Threatening, Hospitalization)
  Sender: FDA-Public Use
  Company Number: DK-BAXTER-2008BH004600

PATIENT
  Age: 79 Year
  Sex: Male
  Weight: 90 kg

DRUGS (3)
  1. METRONIDAZOLE [Suspect]
     Indication: GASTROENTERITIS
     Route: 048
     Dates: start: 20080405, end: 20080408
  2. LOPERAMIDE [Suspect]
     Indication: DIARRHOEA
     Route: 048
     Dates: start: 20080330, end: 20080403
  3. KALEORID [Concomitant]
     Indication: MINERAL SUPPLEMENTATION
     Route: 048

REACTIONS (1)
  - STEVENS-JOHNSON SYNDROME [None]
